FAERS Safety Report 9342660 (Version 2)
Quarter: 2013Q2

REPORT INFORMATION
  Report Type: Spontaneous
  Country: CA (occurrence: CA)
  Receive Date: 20130611
  Receipt Date: 20130619
  Transmission Date: 20140414
  Serious: Yes (Hospitalization)
  Sender: FDA-Public Use
  Company Number: CA-TEVA-411292USA

PATIENT
  Age: 25 Year
  Sex: Female

DRUGS (1)
  1. SEASONALE [Suspect]

REACTIONS (1)
  - Haemorrhage [Recovered/Resolved]
